FAERS Safety Report 7852929-X (Version None)
Quarter: 2011Q4

REPORT INFORMATION
  Report Type: 
  Country: None (occurrence: None)
  Receive Date: 20111026
  Receipt Date: 20111009
  Transmission Date: 20120403
  Serious: No
  Sender: FDA-Public Use
  Company Number: US-BAYER-2011-098086

PATIENT
  Sex: Male
  Weight: 104 kg

DRUGS (1)
  1. ALEVE (CAPLET) [Suspect]
     Indication: HEADACHE
     Dosage: 22 DF, ONCE
     Route: 048
     Dates: start: 20111008, end: 20111008

REACTIONS (2)
  - NAUSEA [None]
  - HYPERHIDROSIS [None]
